FAERS Safety Report 25886832 (Version 1)
Quarter: 2025Q4

REPORT INFORMATION
  Report Type: Spontaneous
  Country: CA (occurrence: None)
  Receive Date: 20251006
  Receipt Date: 20251006
  Transmission Date: 20260118
  Serious: Yes (Disabling)
  Sender: FDA-CTU
  Company Number: None

PATIENT
  Age: 40 Year
  Sex: Female
  Weight: 60.75 kg

DRUGS (1)
  1. QULIPTA [Suspect]
     Active Substance: ATOGEPANT
     Indication: Migraine
     Dates: start: 20250110

REACTIONS (9)
  - Alopecia [None]
  - Weight decreased [None]
  - Nausea [None]
  - Decreased appetite [None]
  - Anxiety [None]
  - Depression [None]
  - Intrusive thoughts [None]
  - Fatigue [None]
  - Fatigue [None]

NARRATIVE: CASE EVENT DATE: 20251006
